FAERS Safety Report 8110251-0 (Version None)
Quarter: 2012Q1

REPORT INFORMATION
  Report Type: 
  Country: None (occurrence: None)
  Receive Date: 20120202
  Receipt Date: 20120125
  Transmission Date: 20120608
  Serious: Yes (Other)
  Sender: FDA-Public Use
  Company Number: US-AMGEN-USASP2012001261

PATIENT
  Age: 55 Year
  Sex: Female
  Weight: 53.97 kg

DRUGS (7)
  1. ZETIA [Concomitant]
     Dosage: 10 MG, UNK
  2. MULTI-VITAMIN [Concomitant]
     Dosage: UNK
  3. PROLIA [Suspect]
     Dosage: 60 MG, Q6MO
     Dates: start: 20111207
  4. ANDROGEL [Concomitant]
     Dosage: 125 MG, Q3CYCLES
  5. CALCIUM [Concomitant]
     Dosage: 1500 MG, UNK
  6. PROLIA [Suspect]
     Dosage: 60 MG, UNK
     Dates: start: 20110625
  7. PROLIA [Suspect]
     Indication: OSTEOPOROSIS POSTMENOPAUSAL
     Dosage: 60 MG, Q6MO
     Dates: start: 20110606

REACTIONS (1)
  - RETINAL DETACHMENT [None]
